FAERS Safety Report 7346695-4 (Version None)
Quarter: 2011Q1

REPORT INFORMATION
  Report Type: 
  Country: None (occurrence: None)
  Receive Date: 20110311
  Receipt Date: 20110304
  Transmission Date: 20110831
  Serious: Yes (Hospitalization)
  Sender: FDA-Public Use
  Company Number: US-US-EMD SERONO, INC.-7019840

PATIENT
  Sex: Female

DRUGS (3)
  1. AMPYRA [Suspect]
     Indication: PRODUCT USED FOR UNKNOWN INDICATION
     Dates: start: 20100918, end: 20100901
  2. REBIF [Suspect]
     Indication: MULTIPLE SCLEROSIS
     Route: 058
     Dates: start: 20060130
  3. AMPYRA [Suspect]
     Dates: start: 20100901

REACTIONS (3)
  - MULTIPLE SCLEROSIS RELAPSE [None]
  - INTERVERTEBRAL DISC PROTRUSION [None]
  - INSOMNIA [None]
